FAERS Safety Report 14450730 (Version 1)
Quarter: 2018Q1

REPORT INFORMATION
  Report Type: Spontaneous
  Country: GB (occurrence: GB)
  Receive Date: 20180126
  Receipt Date: 20180126
  Transmission Date: 20180509
  Serious: Yes (Disabling)
  Sender: FDA-Public Use
  Company Number: None

PATIENT
  Age: 17 Year
  Sex: Female
  Weight: 50.4 kg

DRUGS (8)
  1. WHEATGRASS [Concomitant]
  2. TURMERIC [Concomitant]
     Active Substance: HERBALS\TURMERIC
  3. PROBIOTICS [Concomitant]
     Active Substance: PROBIOTICS NOS
  4. CBD OIL [Concomitant]
     Active Substance: CANNABIDIOL
  5. RHIZOME [Concomitant]
  6. OMEGA 3 [Concomitant]
     Active Substance: OMEGA-3 FATTY ACIDS
  7. ELOCON [Suspect]
     Active Substance: MOMETASONE FUROATE
     Indication: ECZEMA
  8. KRILL OIL [Concomitant]
     Active Substance: DIETARY SUPPLEMENT

REACTIONS (3)
  - Skin burning sensation [None]
  - Pain of skin [None]
  - Neuralgia [None]

NARRATIVE: CASE EVENT DATE: 20150125
